FAERS Safety Report 15112103 (Version 4)
Quarter: 2018Q3

REPORT INFORMATION
  Report Type: Spontaneous
  Country: US (occurrence: US)
  Receive Date: 20180705
  Receipt Date: 20180824
  Transmission Date: 20181010
  Serious: Yes (Other)
  Sender: FDA-Public Use
  Company Number: US-TARO-2018TAR00483

PATIENT
  Age: 65 Year
  Sex: Male
  Weight: 95.24 kg

DRUGS (3)
  1. ATORVASTATIN [Concomitant]
     Active Substance: ATORVASTATIN
     Dosage: 10 MG, UNK
  2. FLUOROURACIL TOPICAL CREAM USP 5% [Suspect]
     Active Substance: FLUOROURACIL
     Indication: SKIN CANCER
     Dosage: THIN LAYER, 1X/DAY
     Route: 061
     Dates: start: 20180610, end: 20180614
  3. MELOXICAM. [Concomitant]
     Active Substance: MELOXICAM
     Dosage: 7.5 MG, UNK

REACTIONS (7)
  - Impaired work ability [Unknown]
  - Burns second degree [Recovering/Resolving]
  - Product appearance confusion [Recovered/Resolved]
  - Expired product administered [Recovered/Resolved]
  - Burns third degree [Recovering/Resolving]
  - Pain [Not Recovered/Not Resolved]
  - Accidental exposure to product [Recovered/Resolved]

NARRATIVE: CASE EVENT DATE: 2018
